FAERS Safety Report 15029023 (Version 1)
Quarter: 2018Q2

REPORT INFORMATION
  Report Type: Spontaneous
  Country: GB (occurrence: GB)
  Receive Date: 20180619
  Receipt Date: 20180619
  Transmission Date: 20180711
  Serious: Yes (Death)
  Sender: FDA-Public Use
  Company Number: GB-FRESENIUS KABI-FK201806829

PATIENT
  Age: 74 Year
  Sex: Male
  Weight: 65 kg

DRUGS (2)
  1. CAPECITABINE. [Concomitant]
     Active Substance: CAPECITABINE
     Indication: PRODUCT USED FOR UNKNOWN INDICATION
  2. GEMCITABINE [Suspect]
     Active Substance: GEMCITABINE\GEMCITABINE HYDROCHLORIDE
     Indication: PANCREATIC CARCINOMA
     Route: 042
     Dates: start: 20171130, end: 20180201

REACTIONS (2)
  - Interstitial lung disease [Fatal]
  - Dyspnoea [Unknown]

NARRATIVE: CASE EVENT DATE: 20180120
